FAERS Safety Report 13896065 (Version 1)
Quarter: 2017Q3

REPORT INFORMATION
  Report Type: Spontaneous
  Country: GB (occurrence: GB)
  Receive Date: 20170823
  Receipt Date: 20170823
  Transmission Date: 20171127
  Serious: Yes (Death, Hospitalization)
  Sender: FDA-Public Use
  Company Number: GB-ACCORD-057454

PATIENT
  Age: 66 Year
  Sex: Female

DRUGS (14)
  1. WARFARIN [Concomitant]
     Active Substance: WARFARIN
  2. ZOMORPH [Concomitant]
     Active Substance: MORPHINE SULFATE
  3. METHOTREXATE. [Suspect]
     Active Substance: METHOTREXATE
     Indication: RHEUMATOID ARTHRITIS
     Route: 048
  4. FOLIC ACID. [Concomitant]
     Active Substance: FOLIC ACID
  5. LANSOPRAZOLE. [Concomitant]
     Active Substance: LANSOPRAZOLE
  6. SERTRALINE [Concomitant]
     Active Substance: SERTRALINE HYDROCHLORIDE
  7. ABATACEPT [Suspect]
     Active Substance: ABATACEPT
     Indication: RHEUMATOID ARTHRITIS
     Route: 042
     Dates: start: 20121206, end: 20170628
  8. CALCIUM GLUCONATE/CALCIUM PHOSPHATE/ERGOCALCIFEROL [Concomitant]
  9. ORAMORPH [Concomitant]
     Active Substance: MORPHINE SULFATE
  10. ALENDRONATE SODIUM/ALENDRONIC ACID [Concomitant]
  11. BISOPROLOL [Concomitant]
     Active Substance: BISOPROLOL
  12. LOPERAMIDE [Concomitant]
     Active Substance: LOPERAMIDE
  13. PREDNISOLONE. [Concomitant]
     Active Substance: PREDNISOLONE
  14. URSODEOXYCHOLATE SODIUM/URSODEOXYCHOLIC ACID [Concomitant]

REACTIONS (9)
  - Confusional state [Unknown]
  - Agitation [Unknown]
  - Cardiac arrest [Fatal]
  - Pneumonia [Fatal]
  - Diarrhoea [Unknown]
  - Vomiting [Unknown]
  - Brain injury [Fatal]
  - Sepsis [Not Recovered/Not Resolved]
  - Pulseless electrical activity [Unknown]

NARRATIVE: CASE EVENT DATE: 20170708
